FAERS Safety Report 10247930 (Version 1)
Quarter: 2014Q2

REPORT INFORMATION
  Report Type: Report from Study
  Country: GB (occurrence: GB)
  Receive Date: 20140619
  Receipt Date: 20140619
  Transmission Date: 20141212
  Serious: Yes (Hospitalization)
  Sender: FDA-Public Use
  Company Number: GB-BAXTER-2014BAX030550

PATIENT
  Age: 62 Year
  Sex: Male
  Weight: 89.08 kg

DRUGS (20)
  1. CYCLOPHOSPHAMIDE INJECTION 1G [Suspect]
     Indication: NON-HODGKIN^S LYMPHOMA
     Route: 042
     Dates: start: 20101021
  2. CYCLOPHOSPHAMIDE INJECTION 1G [Suspect]
     Route: 042
     Dates: start: 20101111, end: 20101111
  3. INOTUZUMAB OZOGAMICIN [Suspect]
     Indication: NON-HODGKIN^S LYMPHOMA
     Route: 042
     Dates: start: 20101022
  4. INOTUZUMAB OZOGAMICIN [Suspect]
     Route: 042
     Dates: start: 20101112, end: 20101112
  5. RITUXIMAB [Suspect]
     Indication: NON-HODGKIN^S LYMPHOMA
     Route: 042
     Dates: start: 20101021
  6. RITUXIMAB [Suspect]
     Route: 042
     Dates: start: 20101111, end: 20101111
  7. VINCRISTINE SULPHATE [Suspect]
     Indication: NON-HODGKIN^S LYMPHOMA
     Route: 042
     Dates: start: 20101021
  8. VINCRISTINE SULPHATE [Suspect]
     Route: 042
     Dates: start: 20101111, end: 20101111
  9. PREDNISONE [Suspect]
     Indication: NON-HODGKIN^S LYMPHOMA
     Route: 048
     Dates: start: 20101021
  10. PREDNISONE [Suspect]
     Route: 048
     Dates: start: 20101115, end: 20101115
  11. TRAMADOL [Concomitant]
     Indication: MUSCULOSKELETAL PAIN
     Route: 065
     Dates: start: 20101004
  12. TRAMADOL [Concomitant]
     Indication: BACK PAIN
  13. CO-DANTHRAMER [Concomitant]
     Indication: CONSTIPATION
     Route: 065
     Dates: start: 20101004
  14. SENNA [Concomitant]
     Indication: CONSTIPATION
     Route: 065
     Dates: start: 2010
  15. BISOPROLOL [Concomitant]
     Indication: HYPERTENSION
     Route: 048
     Dates: start: 20100625, end: 20101018
  16. BISOPROLOL [Concomitant]
     Indication: CONSTIPATION
     Route: 048
     Dates: start: 20101021
  17. MAGNESIUM HYDROXIDE [Concomitant]
     Indication: CONSTIPATION
     Route: 065
     Dates: start: 20101022
  18. ALLOPURINOL [Concomitant]
     Indication: HYPERURICAEMIA
     Route: 065
     Dates: start: 20101021
  19. ACICLOVIR [Concomitant]
     Indication: ANTIVIRAL TREATMENT
     Route: 065
  20. FLUCONAZOLE [Concomitant]
     Indication: ANTIVIRAL TREATMENT
     Route: 065

REACTIONS (3)
  - Pollakiuria [Not Recovered/Not Resolved]
  - Hypercalcaemia [Not Recovered/Not Resolved]
  - Febrile neutropenia [Recovered/Resolved]
